FAERS Safety Report 7961732-1 (Version None)
Quarter: 2011Q4

REPORT INFORMATION
  Report Type: 
  Country: None (occurrence: None)
  Receive Date: 20111207
  Receipt Date: 20111130
  Transmission Date: 20120403
  Serious: Yes (Other)
  Sender: FDA-Public Use
  Company Number: JP-PFIZER INC-2011291757

PATIENT
  Sex: Male

DRUGS (1)
  1. METHYLPREDNISOLONE SODIUM SUCCINATE [Suspect]
     Indication: GRAFT VERSUS HOST DISEASE

REACTIONS (2)
  - HYPERLACTACIDAEMIA [None]
  - HYPERGLYCAEMIA [None]
